FAERS Safety Report 7703158-1 (Version None)
Quarter: 2011Q3

REPORT INFORMATION
  Report Type: 
  Country: None (occurrence: None)
  Receive Date: 20110823
  Receipt Date: 20110821
  Transmission Date: 20111222
  Serious: Yes (Other)
  Sender: FDA-Public Use
  Company Number: CN-PFIZER INC-2011193227

PATIENT

DRUGS (2)
  1. SOLU-MEDROL [Suspect]
     Dosage: 5.4 MG/KG, FOR 23H
  2. SOLU-MEDROL [Suspect]
     Indication: SPINAL CORD INJURY
     Dosage: 30 MG/KG, UNK

REACTIONS (2)
  - PALPITATIONS [None]
  - HEART RATE INCREASED [None]
